FAERS Safety Report 7896569-5 (Version None)
Quarter: 2011Q4

REPORT INFORMATION
  Report Type: 
  Country: None (occurrence: None)
  Receive Date: 20111104
  Receipt Date: 20111104
  Transmission Date: 20120403
  Serious: Yes (Other)
  Sender: FDA-Public Use
  Company Number: None

PATIENT
  Age: 60 Year
  Sex: Female
  Weight: 62.5964 kg

DRUGS (1)
  1. BUSPIRONE HCL [Suspect]
     Indication: DEPRESSION
     Dosage: 15MG 1 DAY
     Dates: start: 20110725, end: 20110815

REACTIONS (4)
  - PAIN IN EXTREMITY [None]
  - ABASIA [None]
  - ARTHRALGIA [None]
  - CHEST PAIN [None]
